FAERS Safety Report 16468304 (Version 1)
Quarter: 2019Q2

REPORT INFORMATION
  Report Type: Other
  Country: CA (occurrence: CA)
  Receive Date: 20190624
  Receipt Date: 20190624
  Transmission Date: 20190711
  Serious: Yes (Other)
  Sender: FDA-Public Use
  Company Number: CA-APOTEX-2019AP016759

PATIENT
  Age: 61 Year
  Sex: Female

DRUGS (7)
  1. FASLODEX [Concomitant]
     Active Substance: FULVESTRANT
     Indication: BREAST CANCER METASTATIC
  2. ANASTROZOLE. [Suspect]
     Active Substance: ANASTROZOLE
     Indication: BREAST CANCER FEMALE
     Dosage: UNK
     Route: 048
  3. IBRANCE [Concomitant]
     Active Substance: PALBOCICLIB
     Indication: HER2 GENE AMPLIFICATION
     Dosage: 125 MG, QD
     Route: 048
  4. IBRANCE [Concomitant]
     Active Substance: PALBOCICLIB
     Indication: BREAST CANCER METASTATIC
  5. IBRANCE [Concomitant]
     Active Substance: PALBOCICLIB
     Indication: BREAST CANCER METASTATIC
  6. FASLODEX [Concomitant]
     Active Substance: FULVESTRANT
     Indication: HER2 GENE AMPLIFICATION
     Dosage: 500 MG, QD
     Route: 030
  7. IBRANCE [Concomitant]
     Active Substance: PALBOCICLIB
     Indication: HER2 GENE AMPLIFICATION
     Dosage: 125 MG, QD
     Route: 048

REACTIONS (1)
  - Malignant neoplasm progression [Unknown]
